FAERS Safety Report 25210175 (Version 7)
Quarter: 2025Q3

REPORT INFORMATION
  Report Type: Spontaneous
  Country: CN (occurrence: CN)
  Receive Date: 20250417
  Receipt Date: 20250918
  Transmission Date: 20251020
  Serious: Yes (Hospitalization, Other)
  Sender: TAKEDA
  Company Number: CN-HUTCHMED LIMITED-HMP2025CN00765

PATIENT
  Age: 61 Year
  Sex: Male
  Weight: 82 kg

DRUGS (5)
  1. FRUQUINTINIB [Suspect]
     Active Substance: FRUQUINTINIB
     Indication: Rectal cancer
     Dosage: 5 MILLIGRAM, QD
     Dates: start: 20250219, end: 20250311
  2. CAPTOPRIL [Concomitant]
     Active Substance: CAPTOPRIL
     Indication: Hypertension
     Dosage: 12.5 MILLIGRAM, TID
     Dates: start: 20250226, end: 20250227
  3. CAPTOPRIL [Concomitant]
     Active Substance: CAPTOPRIL
     Dosage: 25 MILLIGRAM, TID
     Dates: start: 20250228, end: 20250304
  4. CAPTOPRIL [Concomitant]
     Active Substance: CAPTOPRIL
     Dosage: 50 MILLIGRAM, TID
     Dates: start: 20250305
  5. NIFEDIPINE [Concomitant]
     Active Substance: NIFEDIPINE
     Indication: Hypertension
     Dosage: 20 MILLIGRAM, BID
     Dates: start: 20250308

REACTIONS (19)
  - Aspartate aminotransferase increased [Recovered/Resolved]
  - Blood bilirubin increased [Recovered/Resolved]
  - Alanine aminotransferase increased [Recovering/Resolving]
  - Biliary dilatation [Not Recovered/Not Resolved]
  - Sinus tachycardia [Recovered/Resolved]
  - Gamma-glutamyltransferase increased [Recovering/Resolving]
  - Bile acids increased [Recovered/Resolved]
  - Alpha-L-fucosidase increased [Recovered/Resolved]
  - Blood lactate dehydrogenase increased [Recovered/Resolved]
  - Glucose urine present [Recovered/Resolved]
  - Urobilinogen urine increased [Recovered/Resolved]
  - Bilirubin urine present [Recovered/Resolved]
  - Urine ketone body present [Recovered/Resolved]
  - Urine vitamin C present [Not Recovered/Not Resolved]
  - Nausea [Recovered/Resolved]
  - Blood glucose increased [Recovered/Resolved]
  - Blood cholesterol increased [Recovered/Resolved]
  - Blood alkaline phosphatase increased [Recovering/Resolving]
  - Protein urine present [Unknown]

NARRATIVE: CASE EVENT DATE: 20250316
